FAERS Safety Report 7565634-4 (Version None)
Quarter: 2011Q2

REPORT INFORMATION
  Report Type: 
  Country: None (occurrence: None)
  Receive Date: 20110623
  Receipt Date: 20110614
  Transmission Date: 20111010
  Serious: Yes (Hospitalization, Other)
  Sender: FDA-Public Use
  Company Number: NO-JNJFOC-20110606880

PATIENT
  Sex: Female

DRUGS (8)
  1. RISPERDAL [Suspect]
     Route: 065
     Dates: start: 20030530, end: 20030721
  2. RISPERDAL CONSTA [Suspect]
     Indication: SCHIZOPHRENIA, PARANOID TYPE
     Route: 065
     Dates: start: 20030530, end: 20030721
  3. TRILAFON [Suspect]
     Indication: SCHIZOPHRENIA, PARANOID TYPE
     Route: 048
     Dates: start: 19930101, end: 19940101
  4. RISPERDAL [Suspect]
     Indication: SCHIZOPHRENIA, PARANOID TYPE
     Route: 065
  5. CISORDINOL [Suspect]
     Indication: SCHIZOPHRENIA, PARANOID TYPE
     Route: 065
     Dates: start: 19940101
  6. TRILAFON [Suspect]
     Indication: SCHIZOPHRENIA, PARANOID TYPE
     Route: 065
  7. TRILAFON [Suspect]
     Dosage: 108 MG/ML
     Route: 065
  8. SEROQUEL [Suspect]
     Indication: SCHIZOPHRENIA, PARANOID TYPE
     Route: 065
     Dates: start: 20030701

REACTIONS (10)
  - DRUG INEFFECTIVE [None]
  - BLOOD PROLACTIN INCREASED [None]
  - TARDIVE DYSKINESIA [None]
  - MIGRAINE WITH AURA [None]
  - TENSION [None]
  - RESTLESSNESS [None]
  - PARKINSONISM [None]
  - BLOOD CHOLESTEROL INCREASED [None]
  - VISUAL IMPAIRMENT [None]
  - LATENT AUTOIMMUNE DIABETES IN ADULTS [None]
